FAERS Safety Report 5314832-9 (Version None)
Quarter: 2007Q2

REPORT INFORMATION
  Report Type: 
  Country: None (occurrence: None)
  Receive Date: 20070502
  Receipt Date: 20070417
  Transmission Date: 20071010
  Serious: Yes (Death, Other)
  Sender: FDA-Public Use
  Company Number: BE-MERCK-0704BEL00036

PATIENT
  Age: 31 Year
  Sex: Female

DRUGS (11)
  1. CANCIDAS [Suspect]
     Indication: ASPERGILLOSIS
     Route: 042
  2. VORICONAZOLE [Concomitant]
     Indication: ASPERGILLOSIS
     Route: 065
  3. ETHAMBUTOL HYDROCHLORIDE [Concomitant]
     Indication: TUBERCULOSIS
     Route: 065
  4. CORTICOSTEROIDS (UNSPECIFIED) [Concomitant]
     Indication: HISTIOCYTOSIS HAEMATOPHAGIC
     Route: 065
  5. GLOBULIN, IMMUNE [Concomitant]
     Indication: HISTIOCYTOSIS HAEMATOPHAGIC
     Route: 065
  6. VORICONAZOLE [Concomitant]
     Route: 065
  7. CLARITHROMYCIN [Concomitant]
     Indication: MYCOPLASMA INFECTION
     Route: 065
  8. GANCICLOVIR [Concomitant]
     Indication: CYTOMEGALOVIRUS INFECTION
     Route: 065
  9. ISONIAZID AND PYRAZINAMIDE AND RIFAMPIN [Concomitant]
     Indication: TUBERCULOSIS
     Route: 065
  10. FLUCONAZOLE [Concomitant]
     Indication: OESOPHAGITIS
     Route: 065
  11. ESOMEPRAZOLE [Concomitant]
     Indication: OESOPHAGITIS
     Route: 065

REACTIONS (4)
  - CEREBRAL ASPERGILLOSIS [None]
  - HEPATIC CIRRHOSIS [None]
  - HEPATIC FAILURE [None]
  - SEPTIC SHOCK [None]
